FAERS Safety Report 5719512-3 (Version None)
Quarter: 2008Q2

REPORT INFORMATION
  Report Type: 
  Country: None (occurrence: None)
  Receive Date: 20080428
  Receipt Date: 20071030
  Transmission Date: 20081010
  Serious: No
  Sender: FDA-Public Use
  Company Number: A0691756A

PATIENT
  Age: 52 Year
  Sex: Female

DRUGS (2)
  1. AMERGE [Suspect]
     Indication: DRUG USE FOR UNKNOWN INDICATION
     Route: 048
  2. RELPAX [Concomitant]

REACTIONS (1)
  - DRUG INEFFECTIVE [None]
